FAERS Safety Report 12443212 (Version 7)
Quarter: 2016Q3

REPORT INFORMATION
  Report Type: Report from Study
  Country: CA (occurrence: CA)
  Receive Date: 20160607
  Receipt Date: 20160801
  Transmission Date: 20161109
  Serious: Yes (Hospitalization, Other)
  Sender: FDA-Public Use
  Company Number: CA-JNJFOC-20160422718

PATIENT
  Age: 73 Year
  Sex: Male
  Weight: 62.2 kg

DRUGS (2)
  1. IMBRUVICA [Suspect]
     Active Substance: IBRUTINIB
     Indication: MANTLE CELL LYMPHOMA
     Route: 048
     Dates: start: 20160602
  2. IMBRUVICA [Suspect]
     Active Substance: IBRUTINIB
     Indication: MANTLE CELL LYMPHOMA
     Route: 048
     Dates: start: 20160418, end: 20160528

REACTIONS (14)
  - Dysphagia [Not Recovered/Not Resolved]
  - Gastrostomy [Unknown]
  - Influenza [Not Recovered/Not Resolved]
  - Pneumonia [Not Recovered/Not Resolved]
  - Fatigue [Not Recovered/Not Resolved]
  - Weight decreased [Not Recovered/Not Resolved]
  - Asthenia [Not Recovered/Not Resolved]
  - Drug dose omission [None]
  - Mantle cell lymphoma recurrent [Recovering/Resolving]
  - Constipation [Recovered/Resolved]
  - Oesophageal carcinoma [Unknown]
  - Product difficult to swallow [None]
  - Wrong technique in product usage process [Unknown]
  - Hypophagia [None]

NARRATIVE: CASE EVENT DATE: 201604
